FAERS Safety Report 11101807 (Version 2)
Quarter: 2015Q2

REPORT INFORMATION
  Report Type: Spontaneous
  Country: CH (occurrence: CH)
  Receive Date: 20150509
  Receipt Date: 20150509
  Transmission Date: 20150821
  Serious: Yes (Hospitalization, Other)
  Sender: FDA-Public Use
  Company Number: CH-ASTRAZENECA-2015SE41099

PATIENT
  Age: 84 Year
  Sex: Female
  Weight: 46 kg

DRUGS (13)
  1. SEROQUEL XR [Interacting]
     Active Substance: QUETIAPINE FUMARATE
     Dosage: QUETIAPINE SANDOZ, 25 MG, UNKNOWN
     Route: 048
     Dates: start: 20140715
  2. METFIN [Suspect]
     Active Substance: METFORMIN HYDROCHLORIDE
     Dosage: NON AZ PRODUCT, 500 MG, UNKNOWN
     Route: 048
     Dates: start: 20150403, end: 20150403
  3. TRITTICO [Interacting]
     Active Substance: TRAZODONE HYDROCHLORIDE
     Route: 048
     Dates: start: 20150403, end: 20150403
  4. ADALAT CC [Concomitant]
     Active Substance: NIFEDIPINE
     Dates: start: 20140715
  5. IMPORTAL LOESUNG [Concomitant]
     Dates: start: 20140715
  6. LISINOPRIL. [Concomitant]
     Active Substance: LISINOPRIL
     Route: 048
  7. CALCIMAGON D3 [Concomitant]
     Active Substance: CALCIUM\CHOLECALCIFEROL
  8. SEROQUEL XR [Interacting]
     Active Substance: QUETIAPINE FUMARATE
     Route: 048
     Dates: start: 20150403, end: 20150403
  9. BILOL COMP [Concomitant]
     Indication: ESSENTIAL HYPERTENSION
     Route: 048
  10. DAFALGAN [Concomitant]
     Active Substance: ACETAMINOPHEN
     Route: 048
     Dates: start: 20140715
  11. KEPPRA [Concomitant]
     Active Substance: LEVETIRACETAM
     Indication: EPILEPSY
     Route: 048
     Dates: start: 201402
  12. LYRICA [Interacting]
     Active Substance: PREGABALIN
     Route: 048
     Dates: start: 20150403, end: 20150403
  13. ZOLPIDEM MEPHA [Concomitant]
     Dates: start: 20150206

REACTIONS (6)
  - Drug interaction [Unknown]
  - Laryngeal oedema [Unknown]
  - Hypotension [Recovered/Resolved]
  - Coma [Recovered/Resolved]
  - Drug administration error [Recovered/Resolved]
  - Pneumonia aspiration [Unknown]

NARRATIVE: CASE EVENT DATE: 20150403
